FAERS Safety Report 21890245 (Version 2)
Quarter: 2023Q1

REPORT INFORMATION
  Report Type: Report from Study
  Country: US (occurrence: US)
  Receive Date: 20230120
  Receipt Date: 20230127
  Transmission Date: 20230418
  Serious: Yes (Hospitalization)
  Sender: FDA-Public Use
  Company Number: US-SA-SAC20230116000831

PATIENT
  Age: 70 Year
  Sex: Female

DRUGS (3)
  1. DUVELISIB [Suspect]
     Active Substance: DUVELISIB
     Indication: Squamous cell carcinoma of head and neck
     Dosage: 25 MG, BID
     Route: 048
     Dates: start: 20221116, end: 20221207
  2. DUVELISIB [Suspect]
     Active Substance: DUVELISIB
     Dosage: UNK
     Route: 048
     Dates: start: 20221216, end: 20221229
  3. DOCETAXEL [Suspect]
     Active Substance: DOCETAXEL
     Indication: Squamous cell carcinoma of head and neck
     Dosage: 56 MG/M2
     Route: 042
     Dates: start: 20221123, end: 20221214

REACTIONS (4)
  - Blood alkaline phosphatase increased [Not Recovered/Not Resolved]
  - Hyponatraemia [Unknown]
  - Aspartate aminotransferase increased [Unknown]
  - Alanine aminotransferase increased [Unknown]

NARRATIVE: CASE EVENT DATE: 20230106
